FAERS Safety Report 15824368 (Version 1)
Quarter: 2019Q1

REPORT INFORMATION
  Report Type: Spontaneous
  Country: US (occurrence: US)
  Receive Date: 20190115
  Receipt Date: 20190115
  Transmission Date: 20190417
  Serious: No
  Sender: FDA-Public Use
  Company Number: US-MELINTA THERAPEUTICS, INC.-MTP201810-000080

PATIENT
  Sex: Male

DRUGS (1)
  1. BAXDELA [Suspect]
     Active Substance: DELAFLOXACIN MEGLUMINE
     Indication: POSTOPERATIVE WOUND INFECTION
     Dosage: 450 MG
     Route: 048

REACTIONS (5)
  - Nausea [Unknown]
  - Diarrhoea [Unknown]
  - Back pain [Recovering/Resolving]
  - Renal pain [Recovering/Resolving]
  - Vomiting [Unknown]
